FAERS Safety Report 5675638-4 (Version None)
Quarter: 2008Q1

REPORT INFORMATION
  Report Type: 
  Country: None (occurrence: None)
  Receive Date: 20080317
  Receipt Date: 20080303
  Transmission Date: 20080703
  Serious: Yes (Other)
  Sender: FDA-Public Use
  Company Number: 100#08#2008-01356

PATIENT
  Age: 91 Year
  Sex: Female

DRUGS (4)
  1. ISONIAZID [Suspect]
     Indication: JOINT TUBERCULOSIS
     Dosage: 250 MG
  2. PYRAZINAMIDE [Concomitant]
  3. RIFAMPICIN [Concomitant]
  4. PYRIDOXINE (PYRIDOXINE) [Concomitant]

REACTIONS (9)
  - BLOOD CHLORIDE INCREASED [None]
  - BLOOD POTASSIUM DECREASED [None]
  - BLOOD SODIUM INCREASED [None]
  - DEHYDRATION [None]
  - GASTROINTESTINAL HYPOMOTILITY [None]
  - HYPERURICAEMIA [None]
  - LACTIC ACIDOSIS [None]
  - PANCREATITIS ACUTE [None]
  - SEPSIS [None]
